FAERS Safety Report 4271984-X (Version None)
Quarter: 2004Q1

REPORT INFORMATION
  Report Type: 
  Country: None (occurrence: None)
  Receive Date: 20040115
  Receipt Date: 20021015
  Transmission Date: 20041129
  Serious: Yes (Death, Hospitalization, Disabling, Other)
  Sender: FDA-Public Use
  Company Number: US-BRISTOL-MYERS SQUIBB COMPANY-12075826

PATIENT
  Age: 76 Year
  Sex: Male

DRUGS (10)
  1. ATORVASTATIN [Suspect]
     Dosage: THERAPY WITHDRAWN
     Route: 048
     Dates: start: 20010619, end: 20020905
  2. PLACEBO [Suspect]
     Dosage: THERAPY WITHDRAWN
     Route: 048
     Dates: start: 20010705, end: 20020905
  3. TRAZODONE HCL [Concomitant]
     Indication: SLEEP DISORDER
     Route: 048
     Dates: start: 20010307, end: 20020906
  4. ASPIRIN [Concomitant]
     Route: 048
     Dates: start: 20020201
  5. LOPRESSOR [Concomitant]
     Route: 048
     Dates: start: 19971001
  6. HYDROCHLOROTHIAZIDE [Concomitant]
     Route: 048
     Dates: start: 19961001
  7. HYTRIN [Concomitant]
     Route: 048
     Dates: start: 19961001
  8. ZANTAC [Concomitant]
     Route: 048
     Dates: start: 19990901
  9. PLENDIL [Concomitant]
     Route: 048
     Dates: start: 20000201
  10. NITRO-DUR [Concomitant]
     Route: 050
     Dates: start: 20010601

REACTIONS (2)
  - CEREBRAL INFARCTION [None]
  - GLIOBLASTOMA [None]
